FAERS Safety Report 21183446 (Version 2)
Quarter: 2023Q1

REPORT INFORMATION
  Report Type: Spontaneous
  Country: US (occurrence: US)
  Receive Date: 20220808
  Receipt Date: 20230320
  Transmission Date: 20230417
  Serious: Yes (Hospitalization, Other)
  Sender: FDA-Public Use
  Company Number: None

PATIENT
  Age: 15 Year
  Sex: Female

DRUGS (2)
  1. ISONIAZID [Suspect]
     Active Substance: ISONIAZID
     Indication: Bone tuberculosis
     Route: 048
  2. RIFAMPIN [Suspect]
     Active Substance: RIFAMPIN
     Indication: Bone tuberculosis
     Route: 048

REACTIONS (13)
  - Unresponsive to stimuli [Unknown]
  - Sinus tachycardia [Unknown]
  - Base excess [Unknown]
  - Blood lactate dehydrogenase abnormal [Unknown]
  - Blood creatine phosphokinase increased [Recovering/Resolving]
  - Aspartate aminotransferase increased [Recovering/Resolving]
  - Alanine aminotransferase increased [Recovering/Resolving]
  - Bezoar [Recovered/Resolved]
  - Seizure [Unknown]
  - Lip discolouration [Unknown]
  - Skin discolouration [Unknown]
  - Vomiting [Unknown]
  - Overdose [Recovered/Resolved]
